FAERS Safety Report 9772557 (Version 2)
Quarter: 2013Q4

REPORT INFORMATION
  Report Type: Spontaneous
  Country: GR (occurrence: GR)
  Receive Date: 20131219
  Receipt Date: 20131230
  Transmission Date: 20140711
  Serious: Yes (Other)
  Sender: FDA-Public Use
  Company Number: GR-TEVA-450332ISR

PATIENT
  Age: 62 Year
  Sex: 0

DRUGS (4)
  1. OXALIPLATIN [Suspect]
  2. FOLINIC ACID [Suspect]
  3. FLUOROURACIL [Suspect]
  4. BEVACIZUMAB [Suspect]

REACTIONS (1)
  - Metastases to skin [Unknown]
